FAERS Safety Report 14359279 (Version 1)
Quarter: 2018Q1

REPORT INFORMATION
  Report Type: Spontaneous
  Country: US (occurrence: US)
  Receive Date: 20180105
  Receipt Date: 20180105
  Transmission Date: 20180509
  Serious: No
  Sender: FDA-Public Use
  Company Number: US-SA-2017SA123283

PATIENT
  Sex: Female

DRUGS (1)
  1. ZANTAC [Suspect]
     Active Substance: RANITIDINE HYDROCHLORIDE
     Indication: PRODUCT USED FOR UNKNOWN INDICATION
     Route: 048

REACTIONS (6)
  - Chest pain [Unknown]
  - Gastric ulcer haemorrhage [Unknown]
  - Malaise [Unknown]
  - Depressed mood [Unknown]
  - Adverse drug reaction [Unknown]
  - Hypertension [Unknown]
